FAERS Safety Report 4649205-5 (Version None)
Quarter: 2005Q2

REPORT INFORMATION
  Report Type: 
  Country: None (occurrence: None)
  Receive Date: 20050427
  Receipt Date: 20050330
  Transmission Date: 20051028
  Serious: Yes (Hospitalization)
  Sender: FDA-Public Use
  Company Number: GXKR2005FR00734

PATIENT
  Age: 76 Year
  Sex: Male

DRUGS (4)
  1. RIFAMPICIN [Suspect]
     Indication: JOINT PROSTHESIS USER
     Dosage: 1600 MG QD ORAL
     Route: 048
     Dates: start: 20041227, end: 20050127
  2. VANCOMYCIN [Suspect]
     Indication: JOINT PROSTHESIS USER
     Dosage: 2.5 G, QD, INTRAVENOUS
     Route: 042
     Dates: start: 20041229, end: 20050131
  3. MUCOMYST/NET/(ACETYLCYSTEINE SODIUM) [Concomitant]
  4. DI-ANTALVIC (DEXTROPROPOXYPHENE HYDROCHLORIDE, PARACETAMOL) [Concomitant]

REACTIONS (2)
  - DERMATITIS EXFOLIATIVE [None]
  - SKIN OEDEMA [None]
